FAERS Safety Report 18453684 (Version 2)
Quarter: 2020Q4

REPORT INFORMATION
  Report Type: Report from Study
  Country: US (occurrence: US)
  Receive Date: 20201102
  Receipt Date: 20201102
  Transmission Date: 20210114
  Serious: Yes (Other)
  Sender: FDA-Public Use
  Company Number: US-AMGEN-163-10004-14091430

PATIENT
  Age: 40 Year
  Sex: Female
  Weight: 72.57 kg

DRUGS (8)
  1. OTEZLA [Suspect]
     Active Substance: APREMILAST
     Indication: PSORIATIC ARTHROPATHY
     Dosage: 30 MILLIGRAM, BID
     Route: 048
     Dates: start: 2014, end: 2018
  2. FEXOFENADINE [Concomitant]
     Active Substance: FEXOFENADINE HYDROCHLORIDE
     Indication: MULTIPLE ALLERGIES
     Dosage: UNK
     Route: 065
     Dates: start: 2014
  3. INSULIN DETEMIR [Concomitant]
     Active Substance: INSULIN DETEMIR
     Indication: DIABETES MELLITUS
     Dosage: 40 UNIT
     Route: 065
  4. FUROSEMIDE. [Concomitant]
     Active Substance: FUROSEMIDE
     Indication: PRODUCT USED FOR UNKNOWN INDICATION
     Dosage: 20 MILLIGRAM
     Route: 065
  5. INSULIN HUMAN [Concomitant]
     Active Substance: INSULIN HUMAN
     Indication: DIABETES MELLITUS
     Dosage: 48 UNIT
     Route: 065
  6. PRAVASTATIN. [Concomitant]
     Active Substance: PRAVASTATIN
     Indication: PRODUCT USED FOR UNKNOWN INDICATION
     Dosage: 80 MILLIGRAM
     Route: 065
  7. INSULIN HUMAN [Concomitant]
     Active Substance: INSULIN HUMAN
     Dosage: 52 UNIT
     Route: 065
  8. LOSARTAN/HCTZ [Concomitant]
     Active Substance: HYDROCHLOROTHIAZIDE\LOSARTAN
     Indication: PRODUCT USED FOR UNKNOWN INDICATION
     Dosage: 25 MILLIGRAM
     Route: 065

REACTIONS (8)
  - Acne cystic [Not Recovered/Not Resolved]
  - Nausea [Not Recovered/Not Resolved]
  - Diarrhoea [Recovered/Resolved]
  - Pain in extremity [Recovering/Resolving]
  - Headache [Not Recovered/Not Resolved]
  - Asthenia [Not Recovered/Not Resolved]
  - Psoriatic arthropathy [Not Recovered/Not Resolved]
  - Treatment failure [Unknown]

NARRATIVE: CASE EVENT DATE: 20140831
